FAERS Safety Report 9101718 (Version 1)
Quarter: 2013Q1

REPORT INFORMATION
  Report Type: Spontaneous
  Country: GB (occurrence: GB)
  Receive Date: 20130218
  Receipt Date: 20130218
  Transmission Date: 20140127
  Serious: Yes (Other)
  Sender: FDA-Public Use
  Company Number: GB-009507513-1302GBR006214

PATIENT
  Age: 44 Year
  Sex: Male

DRUGS (4)
  1. ISENTRESS [Suspect]
     Indication: HIV INFECTION
     Dosage: 400 MG, BID
     Route: 048
     Dates: start: 20120823, end: 20121119
  2. KALETRA [Concomitant]
     Indication: HIV INFECTION
     Dosage: 3 DF, BID
     Route: 048
     Dates: start: 20060202, end: 20120823
  3. KIVEXA [Concomitant]
     Indication: HIV INFECTION
     Dosage: 1 DF, UNK
     Route: 048
     Dates: start: 20120828
  4. TRUVADA [Concomitant]
     Indication: HIV INFECTION
     Dosage: 1 DF, UNK
     Route: 048
     Dates: start: 20060831, end: 20120828

REACTIONS (4)
  - Anger [Recovering/Resolving]
  - Dissociation [Recovering/Resolving]
  - Apathy [Recovering/Resolving]
  - Depressed mood [Recovering/Resolving]
